FAERS Safety Report 10188173 (Version 1)
Quarter: 2014Q2

REPORT INFORMATION
  Report Type: Spontaneous
  Country: US (occurrence: US)
  Receive Date: 20140522
  Receipt Date: 20140522
  Transmission Date: 20141212
  Serious: No
  Sender: FDA-Public Use
  Company Number: US-PFIZER INC-2014140418

PATIENT
  Age: 55 Year
  Sex: Female
  Weight: 74.83 kg

DRUGS (3)
  1. CELEBREX [Suspect]
     Indication: ARTHRALGIA
     Dosage: 100 MG, 2X/DAY
     Route: 048
     Dates: end: 2013
  2. RIBAVIRIN [Concomitant]
     Dosage: 200 MG, 5X/DAY
  3. SOVALDI [Concomitant]
     Dosage: 400 MG, 1X/DAY

REACTIONS (2)
  - Immune system disorder [Unknown]
  - Drug interaction [Unknown]
